FAERS Safety Report 15945517 (Version 1)
Quarter: 2019Q1

REPORT INFORMATION
  Report Type: Spontaneous
  Country: IT (occurrence: IT)
  Receive Date: 20190211
  Receipt Date: 20190211
  Transmission Date: 20190417
  Serious: Yes (Other)
  Sender: FDA-Public Use
  Company Number: IT-AUROBINDO-AUR-APL-2019-001140

PATIENT

DRUGS (3)
  1. PACLITAXEL CONCENTRATE FOR SOLUTION FOR INFUSION [Suspect]
     Active Substance: PACLITAXEL
     Indication: BLADDER CANCER
     Dosage: 120 MILLIGRAM, EVERY WEEK
     Route: 041
  2. ONDANSETRON SOLUTION FOR INJECTION OR INFUSION [Suspect]
     Active Substance: ONDANSETRON
     Indication: PROPHYLAXIS OF NAUSEA AND VOMITING
     Dosage: 8 MILLIGRAM, EVERY WEEK
     Route: 042
  3. SOLDESAM [Suspect]
     Active Substance: DEXAMETHASONE
     Indication: PROPHYLAXIS OF NAUSEA AND VOMITING
     Dosage: 8 MILLIGRAM, EVERY WEEK
     Route: 065

REACTIONS (1)
  - Haemoglobin decreased [Recovering/Resolving]
